FAERS Safety Report 5508064-9 (Version None)
Quarter: 2007Q4

REPORT INFORMATION
  Report Type: 
  Country: None (occurrence: None)
  Receive Date: 20071106
  Receipt Date: 20071101
  Transmission Date: 20080405
  Serious: Yes (Life-Threatening, Hospitalization)
  Sender: FDA-Public Use
  Company Number: MY-SHR-MY-2007-041429

PATIENT
  Age: 56 Year
  Sex: Female

DRUGS (2)
  1. ULTRAVIST 300 [Suspect]
     Indication: COMPUTERISED TOMOGRAM ABDOMEN
     Dosage: 100 ML, 1 DOSE
     Route: 042
     Dates: start: 20071004, end: 20071004
  2. PREDNISOLON [Concomitant]
     Route: 048

REACTIONS (1)
  - SHOCK [None]
